FAERS Safety Report 5972682-4 (Version None)
Quarter: 2008Q4

REPORT INFORMATION
  Report Type: 
  Country: None (occurrence: None)
  Receive Date: 20081125
  Receipt Date: 20081112
  Transmission Date: 20090506
  Serious: Yes (Hospitalization, Disabling)
  Sender: FDA-Public Use
  Company Number: 000894

PATIENT
  Age: 20 Year
  Sex: Male

DRUGS (4)
  1. BUSULFEX [Suspect]
     Indication: STEM CELL TRANSPLANT
     Dosage: 40 MG, BID
     Route: 042
     Dates: start: 20070307, end: 20070307
  2. MELPHALAN (MELPHALAN) [Concomitant]
  3. PHENYTOIN [Concomitant]
  4. LENOGRASTIM (LENOGRASTIM) [Concomitant]

REACTIONS (8)
  - ANOREXIA [None]
  - BLOOD BILIRUBIN INCREASED [None]
  - BLOOD POTASSIUM DECREASED [None]
  - GAMMA-GLUTAMYLTRANSFERASE INCREASED [None]
  - MALAISE [None]
  - NAUSEA [None]
  - STEM CELL TRANSPLANT [None]
  - VOMITING [None]
